FAERS Safety Report 8897380 (Version 1)
Quarter: 2012Q4

REPORT INFORMATION
  Report Type: Spontaneous
  Country: BE (occurrence: None)
  Receive Date: 20121105
  Receipt Date: 20121105
  Transmission Date: 20130627
  Serious: Yes (Other)
  Sender: FDA-Public Use
  Company Number: B0841482A

PATIENT
  Age: 60 Year
  Sex: Male

DRUGS (9)
  1. ADVAIR [Suspect]
     Indication: CHRONIC OBSTRUCTIVE PULMONARY DISEASE
     Route: 055
  2. EPIVIR [Suspect]
  3. RETROVIR [Suspect]
  4. NELFINAVIR MESYLATE [Suspect]
  5. SAQUINAVIR [Suspect]
  6. ATAZANAVIR [Suspect]
  7. TENOFOVIR (FORMULATION UNKNOWN) (TENOFOVIR) [Suspect]
  8. RITONAVIR [Suspect]
  9. EMTRICITABINE [Suspect]

REACTIONS (2)
  - Cushing^s syndrome [None]
  - Blood cortisol decreased [None]
